FAERS Safety Report 4676660-7 (Version None)
Quarter: 2005Q2

REPORT INFORMATION
  Report Type: 
  Country: None (occurrence: None)
  Receive Date: 20050526
  Receipt Date: 20050513
  Transmission Date: 20051028
  Serious: Yes (Hospitalization, Other)
  Sender: FDA-Public Use
  Company Number: 2005075746

PATIENT
  Sex: Male

DRUGS (10)
  1. BEXTRA [Suspect]
     Indication: ARTHRITIS
     Dosage: 20 MG (20 MG, 1 IN 1 D), ORAL
     Route: 048
     Dates: start: 20020101
  2. PHENYTOIN SODIUM [Concomitant]
  3. PHENYTOIN [Concomitant]
  4. MONTELUKAST SODIUM (MONTELUKAST SODIUM) [Concomitant]
  5. POTASSIUM ACETATE [Concomitant]
  6. GABAPENTIN [Concomitant]
  7. LANSOPRAZOLE [Concomitant]
  8. FUROSEMIDE [Concomitant]
  9. DYAZIDE [Concomitant]
  10. AMLODIPINE BESYLATE [Concomitant]

REACTIONS (16)
  - ASTHENIA [None]
  - BACTERIAL INFECTION [None]
  - CARDIAC ENZYMES INCREASED [None]
  - CHEST PAIN [None]
  - CONDITION AGGRAVATED [None]
  - GASTRIC PH DECREASED [None]
  - HEART RATE INCREASED [None]
  - LUNG INFECTION [None]
  - MOVEMENT DISORDER [None]
  - MYOCARDIAL INFARCTION [None]
  - PAIN [None]
  - PAIN IN EXTREMITY [None]
  - PSEUDOMONAS INFECTION [None]
  - STAPHYLOCOCCAL INFECTION [None]
  - STOMACH DISCOMFORT [None]
  - WHEEZING [None]
